FAERS Safety Report 5601325-4 (Version None)
Quarter: 2008Q1

REPORT INFORMATION
  Report Type: 
  Country: None (occurrence: None)
  Receive Date: 20080124
  Receipt Date: 20080115
  Transmission Date: 20080703
  Serious: No
  Sender: FDA-Public Use
  Company Number: D0055334A

PATIENT
  Age: 18 Year
  Sex: Male
  Weight: 81 kg

DRUGS (3)
  1. FLUTIDE MITE [Suspect]
     Indication: ASTHMA
     Route: 055
     Dates: start: 20071127, end: 20071127
  2. CROMOHEXAL [Concomitant]
     Indication: BRONCHITIS
     Route: 055
     Dates: start: 20071126, end: 20071130
  3. CEBION [Concomitant]
     Indication: BRONCHITIS
     Route: 065
     Dates: start: 20071126, end: 20071130

REACTIONS (4)
  - MYCOPLASMA INFECTION [None]
  - PALATAL OEDEMA [None]
  - PHARYNGEAL ERYTHEMA [None]
  - SENSATION OF BLOOD FLOW [None]
